FAERS Safety Report 26198511 (Version 1)
Quarter: 2025Q4

REPORT INFORMATION
  Report Type: Spontaneous
  Country: AU (occurrence: AU)
  Receive Date: 20251224
  Receipt Date: 20251224
  Transmission Date: 20260117
  Serious: Yes (Death, Hospitalization, Other)
  Sender: PURDUE
  Company Number: AU-PURDUE-USA-2025-0323300

PATIENT
  Age: 52 Year
  Sex: Female

DRUGS (31)
  1. OXYCODONE HYDROCHLORIDE [Suspect]
     Active Substance: OXYCODONE HYDROCHLORIDE
     Indication: Product used for unknown indication
     Dosage: UNK
     Route: 065
  2. SUBOXONE [Suspect]
     Active Substance: BUPRENORPHINE HYDROCHLORIDE\NALOXONE HYDROCHLORIDE
     Indication: Drug dependence
     Dosage: UNK
     Route: 065
  3. SUBOXONE [Suspect]
     Active Substance: BUPRENORPHINE HYDROCHLORIDE\NALOXONE HYDROCHLORIDE
     Indication: Psychosocial support
     Dosage: UNK
     Route: 065
  4. SUBOXONE [Suspect]
     Active Substance: BUPRENORPHINE HYDROCHLORIDE\NALOXONE HYDROCHLORIDE
     Indication: Pain management
     Dosage: 32 MILLIGRAM, DAILY
     Route: 065
     Dates: start: 2007, end: 20190418
  5. BUPRENORPHINE [Suspect]
     Active Substance: BUPRENORPHINE
     Indication: Drug dependence
     Dosage: 1 AS NECESSARY
     Route: 065
  6. BUPRENORPHINE [Suspect]
     Active Substance: BUPRENORPHINE
     Indication: Pain management
     Dosage: 1 AS NECESSARY
     Route: 065
  7. BUPRENORPHINE [Suspect]
     Active Substance: BUPRENORPHINE
     Dosage: 0.6 MILLIGRAM, DAILY
     Route: 065
  8. BUPRENORPHINE [Suspect]
     Active Substance: BUPRENORPHINE
     Dosage: 0.2 MILLIGRAM, DAILY
     Route: 060
  9. CLONAZEPAM [Suspect]
     Active Substance: CLONAZEPAM
     Indication: Pain management
     Dosage: 1 AS NECESSARY
     Route: 065
  10. CLONAZEPAM [Suspect]
     Active Substance: CLONAZEPAM
     Indication: Drug dependence
     Dosage: 1 MILLIGRAM, DAILY
     Route: 065
  11. CLONAZEPAM [Suspect]
     Active Substance: CLONAZEPAM
     Indication: Psychosocial support
     Dosage: 2 MILLIGRAM, DAILY
     Route: 065
  12. CLONAZEPAM [Suspect]
     Active Substance: CLONAZEPAM
     Dosage: 2 MILLIGRAM, DAILY
     Route: 065
  13. CLONAZEPAM [Suspect]
     Active Substance: CLONAZEPAM
     Dosage: UNK
     Route: 065
  14. DIAZEPAM [Suspect]
     Active Substance: DIAZEPAM
     Indication: Product used for unknown indication
     Dosage: UNK
     Route: 065
  15. DULOXETINE HYDROCHLORIDE [Suspect]
     Active Substance: DULOXETINE HYDROCHLORIDE
     Indication: Drug dependence
     Dosage: 120 MILLIGRAM, DAILY
     Route: 065
  16. DULOXETINE HYDROCHLORIDE [Suspect]
     Active Substance: DULOXETINE HYDROCHLORIDE
     Indication: Pain management
     Dosage: 120 MILLIGRAM, DAILY
     Route: 065
  17. DULOXETINE HYDROCHLORIDE [Suspect]
     Active Substance: DULOXETINE HYDROCHLORIDE
     Indication: Psychosocial support
     Dosage: 150 MILLIGRAM, DAILY
     Route: 065
  18. KETAMINE HYDROCHLORIDE [Suspect]
     Active Substance: KETAMINE HYDROCHLORIDE
     Indication: Product used for unknown indication
     Dosage: UNK
     Route: 065
     Dates: start: 20190326
  19. METHADONE HYDROCHLORIDE [Suspect]
     Active Substance: METHADONE HYDROCHLORIDE
     Indication: Drug dependence
     Dosage: 20 MILLIGRAM, DAILY
     Route: 065
  20. METHADONE HYDROCHLORIDE [Suspect]
     Active Substance: METHADONE HYDROCHLORIDE
     Indication: Pain management
     Dosage: 40 MILLIGRAM, DAILY
     Route: 065
  21. METHADONE HYDROCHLORIDE [Suspect]
     Active Substance: METHADONE HYDROCHLORIDE
     Dosage: 40 MILLIGRAM, DAILY
     Route: 065
  22. METHADONE HYDROCHLORIDE [Suspect]
     Active Substance: METHADONE HYDROCHLORIDE
     Dosage: UNK
     Route: 065
  23. PREGABALIN [Suspect]
     Active Substance: PREGABALIN
     Indication: Drug dependence
     Dosage: UNK
     Route: 065
  24. PREGABALIN [Suspect]
     Active Substance: PREGABALIN
     Indication: Psychosocial support
     Dosage: UNK
     Route: 065
  25. PREGABALIN [Suspect]
     Active Substance: PREGABALIN
     Indication: Pain management
     Dosage: 300 MILLIGRAM
     Route: 065
  26. TEMAZEPAM [Suspect]
     Active Substance: TEMAZEPAM
     Indication: Drug dependence
     Dosage: UNK
     Route: 065
  27. TEMAZEPAM [Suspect]
     Active Substance: TEMAZEPAM
     Indication: Psychosocial support
     Dosage: UNK
     Route: 065
  28. TEMAZEPAM [Suspect]
     Active Substance: TEMAZEPAM
     Indication: Pain management
     Dosage: 20 MILLIGRAM, DAILY
     Route: 065
  29. VALPROIC ACID [Suspect]
     Active Substance: VALPROIC ACID
     Indication: Psychosocial support
     Dosage: UNK
     Route: 065
  30. VALPROIC ACID [Suspect]
     Active Substance: VALPROIC ACID
     Indication: Pain management
     Dosage: 1000 MILLIGRAM, DAILY
     Route: 065
  31. VALPROIC ACID [Suspect]
     Active Substance: VALPROIC ACID
     Indication: Drug dependence
     Dosage: 1500 MILLIGRAM, DAILY
     Route: 065

REACTIONS (8)
  - Prescribed overdose [Fatal]
  - Adverse event [Fatal]
  - Toxicity to various agents [Fatal]
  - Arthralgia [Unknown]
  - Depressed level of consciousness [Unknown]
  - Femur fracture [Unknown]
  - Overdose [Unknown]
  - Road traffic accident [Unknown]

NARRATIVE: CASE EVENT DATE: 20180915
